FAERS Safety Report 16544926 (Version 2)
Quarter: 2020Q2

REPORT INFORMATION
  Report Type: Report from Study
  Country: None (occurrence: US)
  Receive Date: 20190709
  Receipt Date: 20200623
  Transmission Date: 20200713
  Serious: Yes (Hospitalization)
  Sender: FDA-Public Use
  Company Number: US-BIOVITRUM-2019US1640

PATIENT
  Age: 31 Year
  Sex: Male

DRUGS (3)
  1. KINERET [Suspect]
     Active Substance: ANAKINRA
     Indication: STILL^S DISEASE
     Route: 058
     Dates: start: 20190615
  2. CYCLOSPORINE. [Concomitant]
     Active Substance: CYCLOSPORINE
  3. KINERET [Suspect]
     Active Substance: ANAKINRA
     Route: 058

REACTIONS (3)
  - Serum ferritin decreased [Unknown]
  - Off label use [Unknown]
  - Blood fibrinogen decreased [Unknown]

NARRATIVE: CASE EVENT DATE: 201906
